FAERS Safety Report 10433703 (Version 1)
Quarter: 2014Q3

REPORT INFORMATION
  Report Type: Spontaneous
  Country: GB (occurrence: GB)
  Receive Date: 20140905
  Receipt Date: 20140905
  Transmission Date: 20150326
  Serious: Yes (Hospitalization, Other)
  Sender: FDA-Public Use
  Company Number: GB-SA-2014SA119270

PATIENT
  Age: 78 Year
  Sex: Female

DRUGS (14)
  1. MORPHINE SULFATE. [Concomitant]
     Active Substance: MORPHINE SULFATE
     Dosage: REDUCED TO 10MG
  2. QUININE SULPHATE [Concomitant]
     Active Substance: QUININE SULFATE
     Dosage: AT NIGHT
  3. OMEPRAZOLE. [Concomitant]
     Active Substance: OMEPRAZOLE
     Dosage: EVERY MORNING
  4. AMLODIPINE [Concomitant]
     Active Substance: AMLODIPINE BESYLATE
     Dosage: EVERY MORNING
  5. ISOSORBIDE MONONITRATE. [Concomitant]
     Active Substance: ISOSORBIDE MONONITRATE
  6. FUROSEMIDE. [Suspect]
     Active Substance: FUROSEMIDE
     Dosage: EVERY MORNING
     Route: 048
     Dates: end: 20110206
  7. ATORVASTATIN [Concomitant]
     Active Substance: ATORVASTATIN
     Dosage: AT NIGHT
  8. RAMIPRIL. [Suspect]
     Active Substance: RAMIPRIL
     Route: 048
     Dates: end: 20110206
  9. GTN [Concomitant]
     Active Substance: NITROGLYCERIN
     Dosage: AS REQUIRED
  10. RANOLAZINE [Concomitant]
     Active Substance: RANOLAZINE
  11. FERROUS FUMARATE [Concomitant]
     Active Substance: FERROUS FUMARATE
  12. SERETIDE [Concomitant]
     Active Substance: FLUTICASONE FUROATE\SALMETEROL XINAFOATE
  13. ASPIRIN. [Concomitant]
     Active Substance: ASPIRIN
     Dosage: EVERY MORNING
  14. TEMAZEPAM. [Concomitant]
     Active Substance: TEMAZEPAM
     Dosage: AT NIGHT

REACTIONS (6)
  - Dyspnoea [Recovered/Resolved]
  - Malaise [Recovered/Resolved]
  - Abdominal pain [Recovered/Resolved]
  - Lower respiratory tract infection [Recovered/Resolved]
  - Renal impairment [Recovered/Resolved]
  - Decreased appetite [Recovered/Resolved]

NARRATIVE: CASE EVENT DATE: 20110206
